FAERS Safety Report 4629062-3 (Version None)
Quarter: 2005Q2

REPORT INFORMATION
  Report Type: 
  Country: None (occurrence: None)
  Receive Date: 20050404
  Receipt Date: 20050404
  Transmission Date: 20051028
  Serious: Yes (Life-Threatening, Hospitalization)
  Sender: FDA-Public Use
  Company Number: None

PATIENT
  Age: 74 Year
  Sex: Female
  Weight: 58.9676 kg

DRUGS (1)
  1. VIOXX [Suspect]
     Indication: ARTHRITIS
     Dosage: 25MG + 12.5MG

REACTIONS (5)
  - ASTHENIA [None]
  - DYSPNOEA [None]
  - MITRAL VALVE REPAIR [None]
  - RESPIRATORY DISTRESS [None]
  - TRIPLE VESSEL BYPASS GRAFT [None]
